FAERS Safety Report 6039446-7 (Version None)
Quarter: 2009Q1

REPORT INFORMATION
  Report Type: 
  Country: None (occurrence: None)
  Receive Date: 20090114
  Receipt Date: 20081225
  Transmission Date: 20090719
  Serious: Yes (Hospitalization, Other)
  Sender: FDA-Public Use
  Company Number: 000119

PATIENT
  Sex: Male

DRUGS (5)
  1. ROTIGOTINE (ROTIGOTINE) [Suspect]
     Indication: PARKINSON'S DISEASE
     Dosage: (4.5 MG TRANSDERMAL)
     Route: 062
     Dates: start: 20081205, end: 20081218
  2. OLMESARTAN MEDOXOMIL [Concomitant]
  3. ATORVASTATIN CALCIUM [Concomitant]
  4. ASPIRIN [Concomitant]
  5. ZOLPIDEM TARTRATE [Concomitant]

REACTIONS (4)
  - CEREBRAL INFARCTION [None]
  - DISEASE RECURRENCE [None]
  - FALL [None]
  - TONIC CONVULSION [None]
